FAERS Safety Report 17813304 (Version 1)
Quarter: 2020Q2

REPORT INFORMATION
  Report Type: Spontaneous
  Country: US (occurrence: US)
  Receive Date: 20200521
  Receipt Date: 20200521
  Transmission Date: 20200714
  Serious: Yes (Other)
  Sender: FDA-Public Use
  Company Number: NVSC2020US138694

PATIENT
  Age: 9 Month
  Sex: Male
  Weight: 5.2 kg

DRUGS (1)
  1. RISPERIDONE. [Suspect]
     Active Substance: RISPERIDONE
     Indication: INTENSIVE CARE UNIT DELIRIUM
     Dosage: 0.5 MG (0.2-0.5)
     Route: 065

REACTIONS (2)
  - Product use in unapproved indication [Unknown]
  - Electrocardiogram QT prolonged [Unknown]
